FAERS Safety Report 6575327-8 (Version None)
Quarter: 2010Q1

REPORT INFORMATION
  Report Type: 
  Country: None (occurrence: None)
  Receive Date: 20100202
  Receipt Date: 20100128
  Transmission Date: 20100710
  Serious: Yes (Hospitalization)
  Sender: FDA-Public Use
  Company Number: SPV1-2010-00163

PATIENT
  Age: 21 Year
  Sex: Male
  Weight: 59.9 kg

DRUGS (10)
  1. CARBATROL [Suspect]
     Indication: CONVULSION
     Dosage: 400MG IN AM; 500MG IN EVENING
     Dates: start: 20090928, end: 20100119
  2. TOPAMAX [Concomitant]
  3. LITHIUM CARBONATE [Concomitant]
  4. SYNTHROID (LEVOTHYROXINE SODIUM) TABLET [Concomitant]
  5. VITAMIN D [Concomitant]
  6. NOVOLOG [Concomitant]
  7. LANTUS [Concomitant]
  8. CONCERTA (METHYLPHENIDATE HYDROCHLORIDE) TABLET [Concomitant]
  9. SIMVASTATIN [Concomitant]
  10. TEGRETOL [Concomitant]

REACTIONS (12)
  - BACK PAIN [None]
  - BLADDER PAIN [None]
  - CALCINOSIS [None]
  - CONSTIPATION [None]
  - DECREASED APPETITE [None]
  - KETOSIS [None]
  - NERVE INJURY [None]
  - PENIS DISORDER [None]
  - TYPE 1 DIABETES MELLITUS [None]
  - URINARY RETENTION [None]
  - VOMITING [None]
  - WEIGHT DECREASED [None]
